FAERS Safety Report 6881861-3 (Version None)
Quarter: 2010Q3

REPORT INFORMATION
  Report Type: 
  Country: None (occurrence: None)
  Receive Date: 20100729
  Receipt Date: 20100720
  Transmission Date: 20110219
  Serious: Yes (Other)
  Sender: FDA-Public Use
  Company Number: CA-JNJFOC-20100706839

PATIENT
  Sex: Female
  Weight: 53.2 kg

DRUGS (6)
  1. REMICADE [Suspect]
     Indication: CROHN'S DISEASE
     Dosage: 25 INFUSIONS
     Route: 042
     Dates: start: 20060701, end: 20100531
  2. REMICADE [Suspect]
     Route: 042
     Dates: start: 20060701, end: 20100531
  3. METHOTREXATE [Concomitant]
  4. WELLBUTRIN [Concomitant]
  5. REACTINE [Concomitant]
  6. BENADRYL [Concomitant]

REACTIONS (3)
  - FISTULA [None]
  - SINUSITIS [None]
  - VAGINAL INFECTION [None]
